FAERS Safety Report 12191076 (Version 1)
Quarter: 2016Q1

REPORT INFORMATION
  Report Type: Other
  Country: US (occurrence: US)
  Receive Date: 20160318
  Receipt Date: 20160318
  Transmission Date: 20160526
  Serious: Yes (Hospitalization, Other)
  Sender: FDA-Public Use
  Company Number: US-ACTELION-A-CH2016-132825

PATIENT
  Age: 51 Year
  Sex: Male

DRUGS (8)
  1. TRACLEER [Suspect]
     Active Substance: BOSENTAN
     Indication: PULMONARY HYPERTENSION
     Dosage: 125 MG, BID
     Route: 048
  2. DULOXETINE. [Concomitant]
     Active Substance: DULOXETINE
     Indication: PAIN IN EXTREMITY
     Dosage: 20 MG, QD
  3. PANTOPRAZOLE [Concomitant]
     Active Substance: PANTOPRAZOLE SODIUM
     Indication: GASTROOESOPHAGEAL REFLUX DISEASE
     Dosage: 20 MG, QD
  4. SILDENAFIL. [Concomitant]
     Active Substance: SILDENAFIL
     Indication: PULMONARY HYPERTENSION
     Dosage: 20 MG, TID
  5. GABAPENTIN. [Concomitant]
     Active Substance: GABAPENTIN
     Indication: PAIN IN EXTREMITY
     Dosage: 600 MG, OD
  6. LEVETIRACETAM. [Concomitant]
     Active Substance: LEVETIRACETAM
     Indication: SEIZURE
     Dosage: 1000 MG, BID
  7. SPIRONOLACTONE. [Concomitant]
     Active Substance: SPIRONOLACTONE
     Indication: PULMONARY HYPERTENSION
     Dosage: 25 MG, BID
  8. VELETRI [Suspect]
     Active Substance: EPOPROSTENOL
     Indication: PULMONARY HYPERTENSION
     Dosage: UNK, CONT INFUS
     Route: 042

REACTIONS (16)
  - Nausea [Unknown]
  - Impulsive behaviour [Unknown]
  - Loss of consciousness [Unknown]
  - Disinhibition [Unknown]
  - Headache [Unknown]
  - Photophobia [Unknown]
  - Subdural haematoma evacuation [Unknown]
  - Executive dysfunction [Unknown]
  - Subdural haematoma [Unknown]
  - Vomiting [Unknown]
  - Seizure like phenomena [Unknown]
  - Craniotomy [Unknown]
  - Thrombocytopenia [Unknown]
  - Anosognosia [Unknown]
  - Cognitive disorder [Unknown]
  - Aphasia [Unknown]
